FAERS Safety Report 5296415-2 (Version None)
Quarter: 2007Q2

REPORT INFORMATION
  Report Type: 
  Country: None (occurrence: None)
  Receive Date: 20070413
  Receipt Date: 20070403
  Transmission Date: 20071010
  Serious: Yes (Other)
  Sender: FDA-Public Use
  Company Number: JP-ROCHE-491739

PATIENT
  Age: 10 Year
  Sex: Female

DRUGS (4)
  1. TAMIFLU [Suspect]
     Indication: INFLUENZA
     Dosage: DOSE FORM: DRY SYRUP.
     Route: 048
     Dates: start: 20060123, end: 20070127
  2. ASVERIN [Concomitant]
     Route: 048
  3. PERIACTIN [Concomitant]
     Route: 048
  4. MUCODYNE [Concomitant]
     Route: 048

REACTIONS (1)
  - HYPOTHERMIA [None]
